FAERS Safety Report 7994540-6 (Version None)
Quarter: 2011Q4

REPORT INFORMATION
  Report Type: 
  Country: None (occurrence: None)
  Receive Date: 20111217
  Receipt Date: 20111217
  Transmission Date: 20120403
  Serious: Yes (Hospitalization)
  Sender: FDA-Public Use
  Company Number: None

PATIENT
  Sex: Female
  Weight: 88.8 kg

DRUGS (2)
  1. CISPLATIN [Suspect]
     Dosage: 141 MG
     Dates: end: 20110518
  2. VINORELBINE TARTRATE [Suspect]
     Dosage: 112 MG
     Dates: end: 20110525

REACTIONS (3)
  - VOMITING [None]
  - NAUSEA [None]
  - URINARY TRACT INFECTION [None]
